FAERS Safety Report 8265496-6 (Version None)
Quarter: 2012Q2

REPORT INFORMATION
  Report Type: 
  Country: None (occurrence: None)
  Receive Date: 20120406
  Receipt Date: 20120403
  Transmission Date: 20120825
  Serious: Yes (Life-Threatening, Hospitalization, Other)
  Sender: FDA-Public Use
  Company Number: JP-PFIZER INC-2012084453

PATIENT
  Age: 11 Year
  Sex: Male

DRUGS (5)
  1. CHORIONIC GONADTROPIN [Concomitant]
     Indication: BLOOD LUTEINISING HORMONE DECREASED
     Dosage: 900 IU, MONTHLY
     Route: 030
     Dates: start: 20090122
  2. SOMATROPIN [Suspect]
     Dosage: 1.2 MG, 1X/DAY
     Dates: start: 20101111
  3. SOMATROPIN [Suspect]
     Dosage: 0.8 MG, 1X/DAY
     Dates: start: 20090716
  4. CHORIONIC GONADTROPIN [Concomitant]
     Indication: BLOOD FOLLICLE STIMULATING HORMONE DECREASED
  5. SOMATROPIN [Suspect]
     Indication: GROWTH HORMONE DEFICIENCY
     Dosage: UNK
     Dates: start: 20050712

REACTIONS (2)
  - CRANIOPHARYNGIOMA [None]
  - NEOPLASM RECURRENCE [None]
